FAERS Safety Report 6728456-X (Version None)
Quarter: 2010Q2

REPORT INFORMATION
  Report Type: 
  Country: None (occurrence: None)
  Receive Date: 20100517
  Receipt Date: 20100506
  Transmission Date: 20101027
  Serious: Yes (Other)
  Sender: FDA-Public Use
  Company Number: ES-GILEAD-E2B_00000698

PATIENT
  Age: 40 Year
  Sex: Male

DRUGS (2)
  1. VIREAD [Suspect]
     Indication: HIV INFECTION
     Route: 048
     Dates: start: 20100202
  2. BARACLUDE [Concomitant]
     Indication: HIV TEST
     Route: 048
     Dates: start: 20081023

REACTIONS (3)
  - MUSCLE RUPTURE [None]
  - MUSCULAR WEAKNESS [None]
  - MYALGIA [None]
